FAERS Safety Report 10546062 (Version 1)
Quarter: 2014Q4

REPORT INFORMATION
  Report Type: Spontaneous
  Country: TW (occurrence: TW)
  Receive Date: 20141027
  Receipt Date: 20141027
  Transmission Date: 20150529
  Serious: Yes (Other)
  Sender: FDA-Public Use
  Company Number: TW-BAXTER-2014BAX062424

PATIENT
  Age: 28 Year
  Sex: Female

DRUGS (5)
  1. GRANULOCYTE COLONY STIMULATING FACTOR [Concomitant]
     Active Substance: GRANULOCYTE COLONY-STIMULATING FACTOR NOS
     Indication: PRODUCT USED FOR UNKNOWN INDICATION
     Route: 065
  2. UROMITEXAN INJECTION 400MG (4ML AMP) [Suspect]
     Active Substance: MESNA
     Indication: PROPHYLAXIS
     Dosage: EVERY FOUR WEEKS
     Route: 065
     Dates: start: 200408
  3. TAMOXIFEN [Suspect]
     Active Substance: TAMOXIFEN
     Indication: ANGIOSARCOMA
     Dosage: DIVIDED INTO FOUR DOSES EVERY FOUR WEEKS
     Route: 065
     Dates: start: 200408
  4. EPIRUBICIN [Suspect]
     Active Substance: EPIRUBICIN
     Indication: ANGIOSARCOMA
     Dosage: EVERY FOUR WEEKS
     Route: 065
     Dates: start: 201408
  5. HOLOXAN (2GM) [Suspect]
     Active Substance: IFOSFAMIDE
     Indication: ANGIOSARCOMA
     Dosage: 2.5 G/M2 EVERY FOUR WEEKS
     Route: 065
     Dates: start: 200408

REACTIONS (8)
  - Decreased appetite [Unknown]
  - Anaemia [Unknown]
  - Neutropenia [Unknown]
  - Metastatic neoplasm [None]
  - Disease progression [Not Recovered/Not Resolved]
  - Thrombocytopenia [Unknown]
  - Vomiting [Unknown]
  - Effusion [None]
